FAERS Safety Report 21488811 (Version 1)
Quarter: 2022Q4

REPORT INFORMATION
  Report Type: Spontaneous
  Country: BG (occurrence: BG)
  Receive Date: 20221021
  Receipt Date: 20221021
  Transmission Date: 20230113
  Serious: Yes (Death, Other)
  Sender: FDA-Public Use
  Company Number: BG-AMGEN-BGRSP2022178825

PATIENT
  Age: 57 Year
  Sex: Female

DRUGS (3)
  1. XGEVA [Suspect]
     Active Substance: DENOSUMAB
     Indication: Product used for unknown indication
     Dosage: 120 MILLIGRAM
     Route: 065
     Dates: start: 202112
  2. ALECTINIB [Concomitant]
     Active Substance: ALECTINIB
     Dosage: 600 MILLIGRAM, BID
     Dates: start: 202112
  3. ZOLEDRONIC ACID [Concomitant]
     Active Substance: ZOLEDRONIC ACID
     Dosage: 4 MILLIGRAM
     Dates: start: 202112

REACTIONS (2)
  - Tumour lysis syndrome [Fatal]
  - Lung adenocarcinoma [Unknown]

NARRATIVE: CASE EVENT DATE: 20220901
